FAERS Safety Report 7444855-5 (Version None)
Quarter: 2011Q2

REPORT INFORMATION
  Report Type: 
  Country: None (occurrence: None)
  Receive Date: 20110429
  Receipt Date: 20110418
  Transmission Date: 20111010
  Serious: Yes (Death, Hospitalization)
  Sender: FDA-Public Use
  Company Number: PT-BRISTOL-MYERS SQUIBB COMPANY-15692379

PATIENT
  Age: 45 Year
  Sex: Female

DRUGS (6)
  1. EMTRICITABINE [Concomitant]
     Indication: ANTIRETROVIRAL THERAPY
     Dates: start: 20110111, end: 20110211
  2. COTRIM [Concomitant]
     Dates: start: 20101110, end: 20110311
  3. EFAVIRENZ [Suspect]
     Indication: HIV INFECTION
     Route: 048
     Dates: start: 20110111, end: 20110202
  4. TEA [Interacting]
  5. CALCIUM [Concomitant]
     Dates: start: 20101110, end: 20110311
  6. TENOFOVIR DISOPROXIL FUMARATE [Concomitant]
     Indication: ANTIRETROVIRAL THERAPY
     Dates: start: 20110111, end: 20110211

REACTIONS (6)
  - HEPATITIS FULMINANT [None]
  - HEPATORENAL SYNDROME [None]
  - HEPATIC FAILURE [None]
  - MEDICATION ERROR [None]
  - OVERDOSE [None]
  - DRUG INTERACTION [None]
